FAERS Safety Report 24263958 (Version 1)
Quarter: 2024Q3

REPORT INFORMATION
  Report Type: Spontaneous
  Country: US (occurrence: US)
  Receive Date: 20240829
  Receipt Date: 20240829
  Transmission Date: 20241016
  Serious: Yes (Hospitalization)
  Sender: NOVARTIS
  Company Number: US-002147023-NVSC2024US173115

PATIENT
  Sex: Male

DRUGS (2)
  1. TAFINLAR [Suspect]
     Active Substance: DABRAFENIB MESYLATE
     Indication: Brain neoplasm malignant
     Dosage: 2 DOSAGE FORM, BID
     Route: 048
     Dates: start: 20240809
  2. TAFINLAR [Suspect]
     Active Substance: DABRAFENIB MESYLATE
     Dosage: 150 MG, BID
     Route: 048
     Dates: start: 202408

REACTIONS (2)
  - Cellulitis [Unknown]
  - Joint swelling [Unknown]
